FAERS Safety Report 16622865 (Version 1)
Quarter: 2019Q3

REPORT INFORMATION
  Report Type: Spontaneous
  Country: US (occurrence: US)
  Receive Date: 20190723
  Receipt Date: 20190723
  Transmission Date: 20191004
  Serious: No
  Sender: FDA-Public Use
  Company Number: US-OTSUKA-2019_022470

PATIENT
  Age: 58 Year
  Sex: Female
  Weight: 116.57 kg

DRUGS (7)
  1. DAYPRO [Concomitant]
     Active Substance: OXAPROZIN
     Indication: PRODUCT USED FOR UNKNOWN INDICATION
     Dosage: UNK
     Route: 065
  2. TOPAMAX [Concomitant]
     Active Substance: TOPIRAMATE
     Indication: PRODUCT USED FOR UNKNOWN INDICATION
     Dosage: UNK
     Route: 065
  3. REXULTI [Suspect]
     Active Substance: BREXPIPRAZOLE
     Dosage: 1 MG AT NIGHT
     Route: 048
  4. FELBATOL [Concomitant]
     Active Substance: FELBAMATE
     Indication: PRODUCT USED FOR UNKNOWN INDICATION
     Dosage: UNK
     Route: 065
  5. REXULTI [Suspect]
     Active Substance: BREXPIPRAZOLE
     Indication: PRODUCT USED FOR UNKNOWN INDICATION
     Dosage: 0.5 MG IN THE EVENING
     Route: 048
     Dates: start: 20190526
  6. PAXIL [Suspect]
     Active Substance: PAROXETINE HYDROCHLORIDE
     Indication: PRODUCT USED FOR UNKNOWN INDICATION
     Dosage: UNK
     Route: 065
     Dates: start: 20190526, end: 20190607
  7. NEURONTIN [Concomitant]
     Active Substance: GABAPENTIN
     Indication: PRODUCT USED FOR UNKNOWN INDICATION
     Dosage: UNK
     Route: 065

REACTIONS (15)
  - Hyperhidrosis [Unknown]
  - Musculoskeletal stiffness [Recovered/Resolved]
  - Withdrawal syndrome [Recovered/Resolved]
  - Euphoric mood [Unknown]
  - Libido increased [Unknown]
  - Gait inability [Recovered/Resolved]
  - Balance disorder [Unknown]
  - Fear [Not Recovered/Not Resolved]
  - Hypokinesia [Recovered/Resolved]
  - Palpitations [Recovered/Resolved]
  - Tardive dyskinesia [Unknown]
  - Tremor [Recovered/Resolved]
  - Confusional state [Unknown]
  - Feeling abnormal [Unknown]
  - Rash [Not Recovered/Not Resolved]

NARRATIVE: CASE EVENT DATE: 20190607
